FAERS Safety Report 7621749-3 (Version None)
Quarter: 2011Q3

REPORT INFORMATION
  Report Type: 
  Country: None (occurrence: None)
  Receive Date: 20110719
  Receipt Date: 20110708
  Transmission Date: 20111222
  Serious: Yes (Hospitalization, Congenital Anomaly, Other)
  Sender: FDA-Public Use
  Company Number: JP-ASTRAZENECA-2011SE31960

PATIENT
  Sex: Male
  Weight: 2.9 kg

DRUGS (9)
  1. RETICOLAN [Suspect]
     Indication: MATERNAL EXPOSURE DURING PREGNANCY
     Route: 064
     Dates: end: 20110418
  2. ROPHYPNOL [Suspect]
     Indication: MATERNAL EXPOSURE DURING PREGNANCY
     Route: 064
     Dates: end: 20110418
  3. CHLORPROMAZINE HCL [Suspect]
     Indication: MATERNAL EXPOSURE DURING PREGNANCY
     Route: 064
     Dates: end: 20110418
  4. NITRAZEPAM [Suspect]
     Indication: MATERNAL EXPOSURE DURING PREGNANCY
     Route: 064
     Dates: end: 20110418
  5. HIRNAMIN [Suspect]
     Route: 064
     Dates: end: 20110418
  6. DEPAKENE [Suspect]
     Dosage: DIVIDED INTO FOUR DOSES
     Route: 064
     Dates: end: 20110418
  7. DOGMATYL [Suspect]
     Indication: MATERNAL EXPOSURE DURING PREGNANCY
     Route: 064
     Dates: end: 20110418
  8. ANAFRANIL [Suspect]
     Indication: MATERNAL EXPOSURE DURING PREGNANCY
     Route: 064
     Dates: end: 20110418
  9. SEROQUEL [Suspect]
     Indication: MATERNAL EXPOSURE DURING PREGNANCY
     Route: 064
     Dates: end: 20110418

REACTIONS (4)
  - FAILURE TO THRIVE [None]
  - TREMOR [None]
  - PLACENTAL INFARCTION [None]
  - CALCINOSIS [None]
